FAERS Safety Report 4524464-8 (Version None)
Quarter: 2005Q1

REPORT INFORMATION
  Report Type: 
  Country: None (occurrence: None)
  Receive Date: 20041116
  Receipt Date: 20040603
  Transmission Date: 20050727
  Serious: Yes (Hospitalization, Disabling, Other)
  Sender: FDA-Public Use
  Company Number: WAES 0406USA00322

PATIENT
  Age: 47 Year
  Sex: Female
  Weight: 57.1532 kg

DRUGS (1)
  1. FOSAMAX [Suspect]
     Indication: OSTEOPENIA
     Dosage: 70 MG/WKY/PO
     Route: 048
     Dates: start: 20040401, end: 20040401

REACTIONS (2)
  - MEDICATION ERROR [None]
  - OESOPHAGITIS [None]
